FAERS Safety Report 23940754 (Version 2)
Quarter: 2024Q2

REPORT INFORMATION
  Report Type: Spontaneous
  Country: US (occurrence: US)
  Receive Date: 20240605
  Receipt Date: 20240608
  Transmission Date: 20240717
  Serious: No
  Sender: FDA-Public Use
  Company Number: US-AMGEN-USASP2024110422

PATIENT
  Age: 69 Year
  Sex: Female

DRUGS (1)
  1. REPATHA [Suspect]
     Active Substance: EVOLOCUMAB
     Indication: Blood cholesterol abnormal
     Dosage: 140 MILLIGRAM
     Route: 058
     Dates: start: 2024

REACTIONS (1)
  - Device difficult to use [Unknown]

NARRATIVE: CASE EVENT DATE: 20240603
